FAERS Safety Report 10810194 (Version 1)
Quarter: 2015Q1

REPORT INFORMATION
  Report Type: Spontaneous
  Country: US (occurrence: None)
  Receive Date: 20150213
  Receipt Date: 20150213
  Transmission Date: 20150721
  Serious: Yes (Other)
  Sender: FDA-Public Use
  Company Number: None

PATIENT
  Age: 48 Year
  Sex: Female
  Weight: 67.13 kg

DRUGS (2)
  1. SYNTHROID [Concomitant]
     Active Substance: LEVOTHYROXINE SODIUM
  2. ARESTIN [Suspect]
     Active Substance: MINOCYCLINE HYDROCHLORIDE
     Indication: TOOTH DISORDER
     Dosage: ? ONCE INTO GUMS
     Route: 004

REACTIONS (6)
  - Impaired work ability [None]
  - Arrhythmia [None]
  - Herpes zoster [None]
  - Tooth infection [None]
  - Influenza [None]
  - Malaise [None]

NARRATIVE: CASE EVENT DATE: 20150114
